FAERS Safety Report 7956542-5 (Version None)
Quarter: 2011Q4

REPORT INFORMATION
  Report Type: 
  Country: None (occurrence: None)
  Receive Date: 20111205
  Receipt Date: 20111128
  Transmission Date: 20120403
  Serious: No
  Sender: FDA-Public Use
  Company Number: US-B.I. PHARMACEUTICALS,INC./RIDGEFIELD-2011-BP-25026BP

PATIENT
  Sex: Female

DRUGS (2)
  1. TRADJENTA [Suspect]
     Indication: TYPE 2 DIABETES MELLITUS
     Dosage: 5 MG
     Route: 048
     Dates: start: 20111020, end: 20111117
  2. VAGIFEM [Concomitant]
     Indication: HYSTERECTOMY
     Route: 067
     Dates: start: 19900101

REACTIONS (5)
  - TACHYPHRENIA [None]
  - ABNORMAL DREAMS [None]
  - VERTIGO [None]
  - DRUG INEFFECTIVE [None]
  - INSOMNIA [None]
